FAERS Safety Report 24637995 (Version 4)
Quarter: 2025Q1

REPORT INFORMATION
  Report Type: Spontaneous
  Country: CA (occurrence: CA)
  Receive Date: 20241119
  Receipt Date: 20250116
  Transmission Date: 20250408
  Serious: Yes (Hospitalization, Other)
  Sender: PFIZER
  Company Number: CA-PFIZER INC-202400304090

PATIENT
  Age: 73 Year
  Sex: Male

DRUGS (2)
  1. RUXIENCE [Suspect]
     Active Substance: RITUXIMAB-PVVR
     Indication: Vasculitis
     Route: 042
     Dates: start: 20230411, end: 20230411
  2. RUXIENCE [Suspect]
     Active Substance: RITUXIMAB-PVVR
     Route: 042
     Dates: start: 20240516, end: 202411

REACTIONS (3)
  - Femur fracture [Recovering/Resolving]
  - Fall [Unknown]
  - Off label use [Unknown]

NARRATIVE: CASE EVENT DATE: 20240101
